FAERS Safety Report 8032787-3 (Version None)
Quarter: 2012Q1

REPORT INFORMATION
  Report Type: 
  Country: None (occurrence: None)
  Receive Date: 20120110
  Receipt Date: 20120107
  Transmission Date: 20120608
  Serious: Yes (Hospitalization, Disabling, Other)
  Sender: FDA-Public Use
  Company Number: US-PFIZER INC-2012005007

PATIENT
  Sex: Male

DRUGS (2)
  1. IBUPROFEN (ADVIL) [Suspect]
     Dosage: UNK
     Route: 048
     Dates: end: 20120101
  2. IBUPROFEN (ADVIL) [Suspect]
     Dosage: UNK
     Route: 048

REACTIONS (10)
  - HEADACHE [None]
  - NAUSEA [None]
  - BLINDNESS [None]
  - MALAISE [None]
  - CHILLS [None]
  - HEART RATE INCREASED [None]
  - DIZZINESS [None]
  - OVERDOSE [None]
  - INFLUENZA [None]
  - ULCER HAEMORRHAGE [None]
